FAERS Safety Report 21816824 (Version 1)
Quarter: 2023Q1

REPORT INFORMATION
  Report Type: Spontaneous
  Country: US (occurrence: None)
  Receive Date: 20230103
  Receipt Date: 20230103
  Transmission Date: 20230418
  Serious: Yes (Other)
  Sender: FDA-Public Use
  Company Number: None

PATIENT
  Age: 12 Year
  Sex: Female

DRUGS (1)
  1. ATROPINE SULFATE [Suspect]
     Active Substance: ATROPINE SULFATE
     Indication: Myopia
     Dosage: FREQUENCY : DAILY;?
     Route: 047
     Dates: start: 20221229, end: 20221229

REACTIONS (4)
  - Photophobia [None]
  - Eye pain [None]
  - Therapy cessation [None]
  - Mydriasis [None]

NARRATIVE: CASE EVENT DATE: 20221229
